FAERS Safety Report 6381269-3 (Version None)
Quarter: 2009Q3

REPORT INFORMATION
  Report Type: 
  Country: None (occurrence: None)
  Receive Date: 20090929
  Receipt Date: 20090916
  Transmission Date: 20100115
  Serious: Yes (Hospitalization, Other)
  Sender: FDA-Public Use
  Company Number: FR-PFIZER INC-2009271048

PATIENT
  Age: 34 Year

DRUGS (5)
  1. ORELOX [Suspect]
     Indication: ILL-DEFINED DISORDER
     Dosage: UNK, UNK
     Route: 048
     Dates: start: 20090523, end: 20090527
  2. DUPHASTON [Suspect]
     Indication: OVULATION INDUCTION
     Dosage: UNK
     Route: 048
     Dates: start: 20090101
  3. CLAMOXYL [Suspect]
     Indication: ILL-DEFINED DISORDER
     Dosage: UNK
     Route: 048
     Dates: start: 20090604, end: 20090609
  4. CLOMID [Suspect]
     Indication: OVULATION INDUCTION
     Dosage: UNK
     Route: 048
     Dates: start: 20090401
  5. PHYSIOGINE [Suspect]
     Indication: OVULATION INDUCTION
     Dosage: UNK
     Route: 048
     Dates: start: 20090101

REACTIONS (1)
  - SYSTEMIC LUPUS ERYTHEMATOSUS [None]
